FAERS Safety Report 14553262 (Version 1)
Quarter: 2018Q1

REPORT INFORMATION
  Report Type: Report from Study
  Country: FR (occurrence: FR)
  Receive Date: 20180220
  Receipt Date: 20180220
  Transmission Date: 20180509
  Serious: Yes (Other)
  Sender: FDA-Public Use
  Company Number: FR-MYLANLABS-2018M1011484

PATIENT

DRUGS (3)
  1. FLUOROURACIL. [Suspect]
     Active Substance: FLUOROURACIL
     Dosage: CONTINUOUS INFUSION OF 2400MG/M2 OVER 46 HOURS.
     Route: 041
  2. FLUOROURACIL. [Suspect]
     Active Substance: FLUOROURACIL
     Indication: GASTRIC CANCER
     Dosage: FOLFIRI PROTOCOL; 400MG/M2 IV BOLUS FOLLOWED BY A CONTINUOUS INFUSION OF 2400MG/M2 OVER 46 HOURS.
     Route: 040
  3. IRINOTECAN [Suspect]
     Active Substance: IRINOTECAN
     Indication: GASTRIC CANCER
     Dosage: FOLFIRI PROTOCOL; 180MG/M2 N 250ML OF PHYSIOLOGICAL SERUM OR DEXTROSE OVER 1 AND A HALF HOURS ON ...
     Route: 042

REACTIONS (1)
  - Febrile neutropenia [Unknown]
